FAERS Safety Report 5254154-8 (Version None)
Quarter: 2007Q1

REPORT INFORMATION
  Report Type: 
  Country: None (occurrence: None)
  Receive Date: 20070302
  Receipt Date: 20070219
  Transmission Date: 20070707
  Serious: Yes (Hospitalization)
  Sender: FDA-Public Use
  Company Number: HQWYE172120FEB07

PATIENT
  Age: 72 Year
  Sex: Female

DRUGS (8)
  1. CORDARONE [Suspect]
     Dosage: UNKNOWN
     Route: 048
  2. OMEPRAZOLE [Concomitant]
     Route: 048
  3. CORTANCYL [Concomitant]
     Route: 048
  4. LASIX [Concomitant]
     Dosage: UNKNOWN
     Route: 048
  5. PREVISCAN [Interacting]
     Indication: ATRIAL FIBRILLATION
     Route: 048
     Dates: start: 20061215, end: 20070123
  6. PREVISCAN [Interacting]
     Route: 048
     Dates: start: 20070126, end: 20070127
  7. PREVISCAN [Interacting]
     Route: 048
     Dates: start: 20070128
  8. DELURSAN [Concomitant]
     Route: 048

REACTIONS (7)
  - DIARRHOEA [None]
  - DRUG INTERACTION [None]
  - HYPERTHERMIA [None]
  - HYPOTENSION [None]
  - INTERNATIONAL NORMALISED RATIO INCREASED [None]
  - MALAISE [None]
  - PROTHROMBIN LEVEL DECREASED [None]
